FAERS Safety Report 15203754 (Version 1)
Quarter: 2018Q4

REPORT INFORMATION
  Report Type: Spontaneous
  Country: US (occurrence: US)
  Receive Date: 20180726
  Receipt Date: 20180726
  Transmission Date: 20190204
  Serious: Yes (Other)
  Sender: FDA-Public Use
  Company Number: US-COLGATE PALMOLIVE COMPANY-20180701686

PATIENT

DRUGS (1)
  1. NATURALLY DRY NATURAL [Suspect]
     Active Substance: ALUMINUM CHLOROHYDRATE
     Indication: PERSONAL HYGIENE
     Dosage: UNKNOWN DOSE, ONCE
     Dates: start: 20180713, end: 20180713

REACTIONS (4)
  - Urticaria [Recovered/Resolved]
  - Swelling [Recovered/Resolved]
  - Feeling abnormal [Recovered/Resolved]
  - Anaphylactic shock [Recovered/Resolved]

NARRATIVE: CASE EVENT DATE: 20180713
